FAERS Safety Report 6356684-4 (Version None)
Quarter: 2009Q3

REPORT INFORMATION
  Report Type: 
  Country: None (occurrence: None)
  Receive Date: 20090915
  Receipt Date: 20090907
  Transmission Date: 20100115
  Serious: Yes (Other)
  Sender: FDA-Public Use
  Company Number: SE-JNJFOC-20090902109

PATIENT
  Age: 89 Year
  Sex: Male

DRUGS (5)
  1. TOPAMAX [Suspect]
     Indication: DEMENTIA
     Route: 048
  2. FURIX [Concomitant]
     Route: 065
  3. ALLOPURINOL [Concomitant]
     Route: 065
  4. CIPRAMIL [Concomitant]
     Route: 065
  5. HEMINEVRIN [Concomitant]
     Route: 065

REACTIONS (6)
  - CONDITION AGGRAVATED [None]
  - DECREASED APPETITE [None]
  - GAIT DISTURBANCE [None]
  - MOOD ALTERED [None]
  - OFF LABEL USE [None]
  - SPEECH DISORDER [None]
